FAERS Safety Report 15077208 (Version 2)
Quarter: 2018Q3

REPORT INFORMATION
  Report Type: Report from Study
  Country: CA (occurrence: CA)
  Receive Date: 20180627
  Receipt Date: 20180719
  Transmission Date: 20181010
  Serious: Yes (Disabling)
  Sender: FDA-Public Use
  Company Number: CA-ACTELION-A-NJ2018-174158

PATIENT
  Age: 35 Year
  Sex: Female

DRUGS (18)
  1. LASIX [Concomitant]
     Active Substance: FUROSEMIDE
  2. BENADRYL [Concomitant]
     Active Substance: DIPHENHYDRAMINE HYDROCHLORIDE
  3. ATIVAN [Concomitant]
     Active Substance: LORAZEPAM
  4. GRAVOL [Concomitant]
     Active Substance: DIMENHYDRINATE
  5. COLACE [Concomitant]
     Active Substance: DOCUSATE SODIUM
  6. ONDANSETRON [Concomitant]
     Active Substance: ONDANSETRON
  7. MORPHINE [Concomitant]
     Active Substance: MORPHINE
     Dosage: UNK, PRN
  8. KEFLEX [Concomitant]
     Active Substance: CEPHALEXIN
  9. TRACLEER [Suspect]
     Active Substance: BOSENTAN
     Indication: PULMONARY ARTERIAL HYPERTENSION
     Dosage: 125 MG, UNK
     Route: 048
     Dates: start: 20160322
  10. VITAMIN B12 [Concomitant]
     Active Substance: CYANOCOBALAMIN
  11. SLOW K [Concomitant]
     Active Substance: POTASSIUM CHLORIDE
  12. MULTIVITAMIN [Concomitant]
     Active Substance: VITAMINS
  13. PARIET [Concomitant]
     Active Substance: RABEPRAZOLE SODIUM
  14. FOLIC ACID. [Concomitant]
     Active Substance: FOLIC ACID
  15. AMITRIPTYLINE [Concomitant]
     Active Substance: AMITRIPTYLINE
  16. OXYGEN. [Concomitant]
     Active Substance: OXYGEN
     Dosage: 3 L, PER MIN
  17. LOVENOX [Concomitant]
     Active Substance: ENOXAPARIN SODIUM
  18. ESCITALOPRAM [Concomitant]
     Active Substance: ESCITALOPRAM OXALATE

REACTIONS (4)
  - Dyspnoea [Not Recovered/Not Resolved]
  - Unevaluable event [Not Recovered/Not Resolved]
  - Influenza [Not Recovered/Not Resolved]
  - Cough [Not Recovered/Not Resolved]
